FAERS Safety Report 13017168 (Version 1)
Quarter: 2016Q4

REPORT INFORMATION
  Report Type: Spontaneous
  Country: DE (occurrence: DE)
  Receive Date: 20161212
  Receipt Date: 20161212
  Transmission Date: 20170207
  Serious: Yes (Hospitalization)
  Sender: FDA-Public Use
  Company Number: DE-ACTELION-A-CH2016-143430

PATIENT
  Age: 79 Year
  Sex: Female
  Weight: 66 kg

DRUGS (1)
  1. OPSUMIT [Suspect]
     Active Substance: MACITENTAN
     Indication: PULMONARY ARTERIAL HYPERTENSION
     Dosage: 10 MG, OD
     Route: 048
     Dates: start: 201608, end: 20160930

REACTIONS (9)
  - Rash pruritic [Unknown]
  - Blister [Unknown]
  - Rash pustular [Unknown]
  - Scar [Unknown]
  - Pemphigus [Unknown]
  - Rash macular [Unknown]
  - Prurigo [Unknown]
  - Rash [Unknown]
  - Skin lesion [Unknown]
